FAERS Safety Report 6136921-1 (Version None)
Quarter: 2009Q1

REPORT INFORMATION
  Report Type: 
  Country: None (occurrence: None)
  Receive Date: 20090330
  Receipt Date: 20090318
  Transmission Date: 20090719
  Serious: Yes (Other)
  Sender: FDA-Public Use
  Company Number: JP-MERCK-0903USA04333M

PATIENT
  Sex: Female

DRUGS (4)
  1. DECADRON [Suspect]
     Indication: FOETAL CARDIAC DISORDER
     Route: 048
  2. DECADRON [Suspect]
     Indication: MYOCARDITIS
     Route: 048
  3. RITODRINE HYDROCHLORIDE [Concomitant]
     Indication: FOETAL CARDIAC DISORDER
     Route: 065
  4. RITODRINE HYDROCHLORIDE [Concomitant]
     Indication: MYOCARDITIS
     Route: 065

REACTIONS (9)
  - ATRIAL SEPTAL DEFECT [None]
  - ATRIOVENTRICULAR BLOCK COMPLETE [None]
  - CAESAREAN SECTION [None]
  - DEVELOPMENTAL DELAY [None]
  - DRUG EXPOSURE DURING PREGNANCY [None]
  - FOETAL GROWTH RETARDATION [None]
  - MYOCARDITIS [None]
  - OLIGOHYDRAMNIOS [None]
  - TRISOMY 21 [None]
